FAERS Safety Report 7215971-8 (Version None)
Quarter: 2011Q1

REPORT INFORMATION
  Report Type: 
  Country: None (occurrence: None)
  Receive Date: 20110104
  Receipt Date: 20110104
  Transmission Date: 20110831
  Serious: Yes (Disabling)
  Sender: FDA-Public Use
  Company Number: None

PATIENT
  Age: 22 Year
  Sex: Female
  Weight: 58.9676 kg

DRUGS (1)
  1. YAZ [Suspect]
     Indication: CONTRACEPTION
     Dosage: 1 PILL PER DAY EVERY DAY PO
     Route: 048
     Dates: start: 20000101, end: 20020415

REACTIONS (1)
  - CHOLELITHIASIS [None]
